FAERS Safety Report 6123494-2 (Version None)
Quarter: 2009Q1

REPORT INFORMATION
  Report Type: 
  Country: None (occurrence: None)
  Receive Date: 20090318
  Receipt Date: 20090310
  Transmission Date: 20090719
  Serious: Yes (Other)
  Sender: FDA-Public Use
  Company Number: US-AMGEN-KDL331525

PATIENT
  Sex: Male
  Weight: 99.4 kg

DRUGS (1)
  1. ENBREL [Suspect]
     Indication: RHEUMATOID ARTHRITIS
     Route: 058
     Dates: start: 20090104

REACTIONS (7)
  - ARTHRALGIA [None]
  - DYSPHAGIA [None]
  - DYSPNOEA [None]
  - JOINT SWELLING [None]
  - MUSCULAR WEAKNESS [None]
  - OEDEMA PERIPHERAL [None]
  - PAIN IN EXTREMITY [None]
